FAERS Safety Report 18509468 (Version 1)
Quarter: 2020Q4

REPORT INFORMATION
  Report Type: Spontaneous
  Country: US (occurrence: US)
  Receive Date: 20201117
  Receipt Date: 20201117
  Transmission Date: 20210114
  Serious: No
  Sender: FDA-Public Use
  Company Number: US-TARO-2020TAR00288

PATIENT

DRUGS (2)
  1. TRIAMCINOLONE ACETONIDE DENTAL PASTE USP 0.1% [Suspect]
     Active Substance: TRIAMCINOLONE ACETONIDE
     Dosage: LESS THAN THE TIP OF A FINGER, BID (AFTER BREAKFAST AND AT BEDTIME)
     Route: 048
     Dates: start: 202001
  2. AMLODIPINE [Concomitant]
     Active Substance: AMLODIPINE BESYLATE
     Indication: BLOOD PRESSURE ABNORMAL
     Route: 065

REACTIONS (5)
  - Condition aggravated [Not Recovered/Not Resolved]
  - Drug ineffective for unapproved indication [Unknown]
  - Oral discomfort [Not Recovered/Not Resolved]
  - Oral mucosal exfoliation [Not Recovered/Not Resolved]
  - Stomatitis [Not Recovered/Not Resolved]

NARRATIVE: CASE EVENT DATE: 202002
